FAERS Safety Report 19300609 (Version 1)
Quarter: 2021Q2

REPORT INFORMATION
  Report Type: Spontaneous
  Country: US (occurrence: US)
  Receive Date: 20210525
  Receipt Date: 20210525
  Transmission Date: 20210717
  Serious: Yes (Hospitalization)
  Sender: FDA-Public Use
  Company Number: None

PATIENT
  Age: 58 Year
  Sex: Male

DRUGS (9)
  1. DEXAMETHASONE 4MG TAB [Concomitant]
     Active Substance: DEXAMETHASONE
  2. ALBUTEROL HFA [Concomitant]
     Active Substance: ALBUTEROL SULFATE
  3. PANTOPRAZOLE 40 MG TAB [Concomitant]
  4. ADVAIR 500/50 DISKUS [Concomitant]
  5. CLONAZEPAM 0.5 MG TAB [Concomitant]
  6. ONDANSETRON 8 MG TAB [Concomitant]
  7. TEMOZOLOMIDE 100 MG CAPSULE [Suspect]
     Active Substance: TEMOZOLOMIDE
     Indication: BRAIN NEOPLASM MALIGNANT
     Route: 048
  8. AUGMENTIN 875 TAB [Concomitant]
  9. SERTRALINE 50 MG TAB [Concomitant]

REACTIONS (1)
  - Seizure [None]

NARRATIVE: CASE EVENT DATE: 20210428
